FAERS Safety Report 7419668-0 (Version None)
Quarter: 2011Q2

REPORT INFORMATION
  Report Type: 
  Country: None (occurrence: None)
  Receive Date: 20110418
  Receipt Date: 20110406
  Transmission Date: 20111010
  Serious: Yes (Other)
  Sender: FDA-Public Use
  Company Number: US-JNJFOC-20110403397

PATIENT
  Sex: Female
  Weight: 76.66 kg

DRUGS (11)
  1. CYCLOBENZAPRINE [Concomitant]
     Indication: MUSCLE SPASMS
     Route: 048
  2. CYCLOBENZAPRINE [Concomitant]
     Indication: NEUROPATHY PERIPHERAL
     Route: 048
  3. DIAZEPAM [Concomitant]
     Indication: MUSCLE SPASMS
     Route: 048
  4. AMITRIPTYLINE [Concomitant]
     Indication: POOR QUALITY SLEEP
     Route: 065
  5. FENTANYL-100 [Suspect]
     Indication: PAIN
     Route: 062
  6. DURAGESIC [Suspect]
     Indication: PAIN
     Route: 062
  7. TRAMADOL [Concomitant]
     Indication: PAIN
     Route: 048
  8. LYRICA [Concomitant]
     Indication: PROCEDURAL PAIN
     Route: 048
  9. TRAZODONE [Concomitant]
     Indication: POOR QUALITY SLEEP
     Route: 048
  10. NARCOTIC ANALGESICS, NOS [Concomitant]
     Indication: PAIN
     Dosage: 20/650 MG/TABLET/10/325MG/2 AS NEEDED
     Route: 048
  11. DIAZEPAM [Concomitant]
     Indication: NEUROPATHY PERIPHERAL
     Route: 048

REACTIONS (3)
  - CERVICAL MYELOPATHY [None]
  - THERAPEUTIC RESPONSE UNEXPECTED WITH DRUG SUBSTITUTION [None]
  - LIP AND/OR ORAL CAVITY CANCER [None]
